FAERS Safety Report 17756904 (Version 1)
Quarter: 2020Q2

REPORT INFORMATION
  Report Type: Spontaneous
  Country: CZ (occurrence: CZ)
  Receive Date: 20200507
  Receipt Date: 20200507
  Transmission Date: 20200714
  Serious: Yes (Hospitalization)
  Sender: FDA-Public Use
  Company Number: CZ-CELLTRION-2020-CZ-000007

PATIENT
  Age: 77 Year
  Sex: Female

DRUGS (1)
  1. MEMANTINE (NON-SPECIFIC) [Suspect]
     Active Substance: MEMANTINE
     Indication: DEMENTIA ALZHEIMER^S TYPE
     Dosage: 20 MG DAILY
     Route: 065

REACTIONS (1)
  - Dyskinesia [Recovered/Resolved]
